FAERS Safety Report 7246834-X (Version None)
Quarter: 2011Q1

REPORT INFORMATION
  Report Type: 
  Country: None (occurrence: None)
  Receive Date: 20110127
  Receipt Date: 20110119
  Transmission Date: 20110831
  Serious: Yes (Other)
  Sender: FDA-Public Use
  Company Number: FR-AMGEN-FRASP2011004135

PATIENT
  Age: 39 Year
  Sex: Female

DRUGS (5)
  1. ENBREL [Suspect]
     Indication: RHEUMATOID ARTHRITIS
     Dosage: UNK
     Route: 058
     Dates: start: 20090501, end: 20090501
  2. LAMALINE [Concomitant]
     Dosage: UNK
  3. TOPALGIC [Concomitant]
     Dosage: UNK
  4. LUDEAL [Concomitant]
     Dosage: UNK
  5. ALMOGRAN [Concomitant]
     Dosage: UNK

REACTIONS (1)
  - SINUS TACHYCARDIA [None]
